FAERS Safety Report 8845680 (Version 1)
Quarter: 2012Q4

REPORT INFORMATION
  Report Type: 
  Country: FR (occurrence: FR)
  Receive Date: 20121017
  Receipt Date: 20121017
  Transmission Date: 20130627
  Serious: Yes (Other)
  Sender: FDA-Public Use
  Company Number: FR-ROCHE-791946

PATIENT
  Age: 72 Year
  Sex: Female

DRUGS (3)
  1. ROCEPHINE [Suspect]
     Indication: URINARY TRACT INFECTION
     Route: 065
     Dates: start: 20110311, end: 20110312
  2. MYOLASTAN [Suspect]
     Indication: PRODUCT USED FOR UNKNOWN INDICATION
     Route: 048
     Dates: start: 20110306, end: 20110314
  3. PERFALGAN [Concomitant]
     Route: 065

REACTIONS (1)
  - Acute generalised exanthematous pustulosis [Recovered/Resolved]
